FAERS Safety Report 20107748 (Version 1)
Quarter: 2021Q4

REPORT INFORMATION
  Report Type: Spontaneous
  Country: US (occurrence: US)
  Receive Date: 20211124
  Receipt Date: 20211124
  Transmission Date: 20220303
  Serious: No
  Sender: FDA-Public Use
  Company Number: US-PERRIGO-20US017582

PATIENT
  Age: 75 Year
  Sex: Female
  Weight: 72.109 kg

DRUGS (12)
  1. POLYETHYLENE GLYCOL 3350 [Suspect]
     Active Substance: POLYETHYLENE GLYCOL 3350
     Indication: Constipation
     Dosage: 17 G, QD PM
     Route: 048
     Dates: start: 20201120, end: 20201205
  2. BUPROPION HYDROCHLORIDE XL [Concomitant]
     Active Substance: BUPROPION HYDROCHLORIDE
     Indication: Depression
     Dosage: 300 MG, UNKNOWN
     Route: 065
  3. MONTELUKAST [Concomitant]
     Active Substance: MONTELUKAST SODIUM
     Indication: Product used for unknown indication
     Dosage: UNKNOWN, UNKNOWN
     Route: 065
  4. MECLIZINE                          /00072801/ [Concomitant]
     Indication: Balance disorder
     Dosage: UNKNOWN, UNKNOWN
     Route: 065
  5. LORAZEPAM [Concomitant]
     Active Substance: LORAZEPAM
     Indication: Depression
     Dosage: 0.5 MG, UNKNOWN
     Route: 065
  6. OXCARBAZEPINE [Concomitant]
     Active Substance: OXCARBAZEPINE
     Indication: Depression
     Dosage: 300 MG. UNKNOWN
     Route: 065
  7. NEXIUM                             /01479302/ [Concomitant]
     Indication: Gastrooesophageal reflux disease
     Dosage: UNKNOWN, UNKNOWN
     Route: 065
  8. CALCIUM [Concomitant]
     Active Substance: CALCIUM
     Indication: Arthritis
     Dosage: UNKNOWN, UNKNOWN
     Route: 065
  9. PROBIOTIC                          /06395501/ [Concomitant]
     Indication: Supplementation therapy
     Dosage: UNKNOWN, UNKNOWN
     Route: 065
  10. CYPROHEPTADINE [Concomitant]
     Active Substance: CYPROHEPTADINE
     Indication: Eczema
     Dosage: UNKNOWN, UNKNOWN
     Route: 065
  11. ASPIRIN                            /00002701/ [Concomitant]
     Indication: Thrombosis
     Dosage: UNKNOWN, UNKNOWN
     Route: 065
     Dates: start: 2019
  12. VITAMIN B12                        /00056201/ [Concomitant]
     Indication: Depression
     Dosage: UNKNOWN, UNKNOWN
     Route: 065
     Dates: start: 2018

REACTIONS (1)
  - Drug ineffective [Unknown]

NARRATIVE: CASE EVENT DATE: 20201120
